FAERS Safety Report 10247585 (Version 1)
Quarter: 2014Q2

REPORT INFORMATION
  Report Type: Spontaneous
  Country: IT (occurrence: IT)
  Receive Date: 20140619
  Receipt Date: 20140619
  Transmission Date: 20141212
  Serious: Yes (Other)
  Sender: FDA-Public Use
  Company Number: IT-JNJFOC-20140607002

PATIENT
  Age: 46 Year
  Sex: Female

DRUGS (1)
  1. XEPLION [Suspect]
     Indication: PSYCHOTIC DISORDER
     Route: 030
     Dates: start: 20140501, end: 20140601

REACTIONS (1)
  - Mastitis [Recovering/Resolving]
